FAERS Safety Report 9422292 (Version 2)
Quarter: 2013Q3

REPORT INFORMATION
  Report Type: Spontaneous
  Country: US (occurrence: US)
  Receive Date: 20130726
  Receipt Date: 20130812
  Transmission Date: 20140515
  Serious: No
  Sender: FDA-Public Use
  Company Number: US-PFIZER INC-2012057966

PATIENT
  Age: 69 Year
  Sex: Female
  Weight: 72.6 kg

DRUGS (13)
  1. AMITRIPTYLINE [Suspect]
     Dosage: 175 MG, DAILY
  2. LOSARTAN [Concomitant]
     Indication: BLOOD PRESSURE ABNORMAL
     Dosage: 5 MG, DAILY
  3. COZAAR [Concomitant]
     Dosage: 50 (UNIT AND FREQUENCY UNKNOWN)
  4. DYAZIDE [Concomitant]
     Dosage: HYDROCHLOROTHIAZIDE: 37.5/ TRIAMTERENE: 25 (UNIT AND FREQUENCY UNKNOWN),
  5. ALEVE [Concomitant]
     Dosage: 220 (UNKNOWN UNIT), 2X/DAY
  6. CALCIUM [Concomitant]
     Dosage: UNK
  7. CHONDROITIN/GLUCOSAMINE [Concomitant]
     Dosage: UNK
  8. VITAMIN D [Concomitant]
     Dosage: UNK
  9. EFFEXOR XR [Suspect]
     Indication: MALAISE
     Dosage: 75 MG, ONCE DAILY (3 Q AM)
     Route: 048
  10. EFFEXOR XR [Suspect]
     Indication: DEPRESSION
     Dosage: 75 MG, 3X/DAY
     Route: 048
  11. EFFEXOR XR [Suspect]
     Dosage: 75 MG, DAILY
     Route: 048
  12. VENLAFAXINE HCL [Suspect]
     Indication: DEPRESSION
     Dosage: 75 MG, TID
     Dates: start: 20091124, end: 20120130
  13. AMITRIPTYLINE [Suspect]
     Indication: DEPRESSION
     Dosage: 200 MG, DAILY AT BED TIME

REACTIONS (6)
  - Cardiovascular disorder [Unknown]
  - Pain in extremity [Unknown]
  - Paraesthesia [Not Recovered/Not Resolved]
  - Balance disorder [Unknown]
  - Metabolic disorder [Unknown]
  - Drug ineffective [Unknown]
